FAERS Safety Report 10031403 (Version 1)
Quarter: 2014Q1

REPORT INFORMATION
  Report Type: Spontaneous
  Country: US (occurrence: US)
  Receive Date: 20140324
  Receipt Date: 20140324
  Transmission Date: 20141002
  Serious: Yes (Hospitalization)
  Sender: FDA-Public Use
  Company Number: US-BAYER-2014-041790

PATIENT
  Age: 37 Year
  Sex: Female
  Weight: 83.45 kg

DRUGS (3)
  1. YAZ [Suspect]
  2. YASMIN [Suspect]
  3. AMOXICILLIN [Concomitant]
     Indication: OTITIS MEDIA

REACTIONS (1)
  - Pulmonary embolism [None]
